FAERS Safety Report 6802783-X (Version None)
Quarter: 2010Q2

REPORT INFORMATION
  Report Type: 
  Country: None (occurrence: None)
  Receive Date: 20100628
  Receipt Date: 20100614
  Transmission Date: 20101027
  Serious: Yes (Other)
  Sender: FDA-Public Use
  Company Number: DE-ELI_LILLY_AND_COMPANY-DE201004003366

PATIENT
  Sex: Male
  Weight: 80 kg

DRUGS (2)
  1. FORTEO [Suspect]
     Indication: OSTEOPOROSIS
     Dosage: 20 UG, UNKNOWN
     Route: 058
     Dates: start: 20100110, end: 20100407
  2. CORTISON [Concomitant]
     Indication: PULMONARY FIBROSIS
     Dosage: 15-20MG, UNKNOWN
     Route: 048
     Dates: start: 20030101

REACTIONS (2)
  - PULMONARY FIBROSIS [None]
  - RIB FRACTURE [None]
